FAERS Safety Report 4686660-9 (Version None)
Quarter: 2005Q2

REPORT INFORMATION
  Report Type: 
  Country: None (occurrence: None)
  Receive Date: 20050609
  Receipt Date: 20050506
  Transmission Date: 20051028
  Serious: Yes (Other)
  Sender: FDA-Public Use
  Company Number: 2005AP02745

PATIENT
  Age: 11411 Day
  Sex: Female
  Weight: 70 kg

DRUGS (2)
  1. ANAPEINE [Suspect]
     Indication: EPIDURAL ANAESTHESIA
     Route: 008
     Dates: start: 20050502, end: 20050502
  2. XYLOCAINE [Concomitant]
     Indication: EPIDURAL ANAESTHESIA
     Route: 008
     Dates: start: 20050502, end: 20050502

REACTIONS (3)
  - CONVULSION [None]
  - DRUG TOXICITY [None]
  - THERAPEUTIC AGENT TOXICITY [None]
